FAERS Safety Report 7656523-5 (Version None)
Quarter: 2011Q3

REPORT INFORMATION
  Report Type: 
  Country: None (occurrence: None)
  Receive Date: 20110804
  Receipt Date: 20100809
  Transmission Date: 20111222
  Serious: No
  Sender: FDA-Public Use
  Company Number: US-BAUSCH-2010BL005828

PATIENT
  Age: 62 Year
  Sex: Female

DRUGS (2)
  1. OPCON-A [Suspect]
     Indication: EYE IRRITATION
     Route: 047
  2. OPCON-A [Suspect]
     Indication: OCULAR HYPERAEMIA
     Route: 047

REACTIONS (1)
  - INSTILLATION SITE PAIN [None]
